FAERS Safety Report 7738620-9 (Version None)
Quarter: 2011Q3

REPORT INFORMATION
  Report Type: 
  Country: None (occurrence: None)
  Receive Date: 20110908
  Receipt Date: 20110907
  Transmission Date: 20111222
  Serious: Yes (Death, Hospitalization)
  Sender: FDA-Public Use
  Company Number: AU-B.I. PHARMACEUTICALS,INC./RIDGEFIELD-2011-AU-01011AU

PATIENT
  Sex: Female
  Weight: 61 kg

DRUGS (3)
  1. NOTEN [Concomitant]
     Dosage: 100 MG
  2. ACIMAX [Concomitant]
     Dosage: 20 MG
  3. PRADAXA [Suspect]
     Indication: ATRIAL FIBRILLATION
     Dosage: 300 MG
     Dates: start: 20110629

REACTIONS (1)
  - LOSS OF CONSCIOUSNESS [None]
